FAERS Safety Report 9500329 (Version 3)
Quarter: 2013Q4

REPORT INFORMATION
  Report Type: Spontaneous
  Country: US (occurrence: None)
  Receive Date: 20130524
  Receipt Date: 20131226
  Transmission Date: 20140711
  Serious: Yes (Other)
  Sender: FDA-Public Use
  Company Number: PHEH2012US021077

PATIENT
  Age: 45 Year
  Sex: Female
  Weight: 83.9 kg

DRUGS (7)
  1. GILENYA [Suspect]
     Indication: MULTIPLE SCLEROSIS
     Dosage: 0.5 MG, QD, ORAL  25OCT2012 TO ONGOING THERAPY DATES
     Route: 048
     Dates: start: 20121025
  2. SEROQUEL (QUETIAPINE FUMARATE) [Concomitant]
  3. PRISTIQ (DESVENLAFAXINE SUCCINATE) [Concomitant]
  4. ZYRTEC  (CETIRIZINE HYDROCHLORORIDE) [Concomitant]
  5. MOTRIN (IBUPROFEN) [Concomitant]
  6. IMITREX (SUMATRIPTAN SUCCINATE) [Concomitant]
  7. CLONAZEPAM (CLONAZEPAM) (CLONAZEPAM) [Concomitant]

REACTIONS (6)
  - Feeling abnormal [None]
  - Vertigo [None]
  - Fatigue [None]
  - Nausea [None]
  - Headache [None]
  - Dizziness [None]
